FAERS Safety Report 5297502-5 (Version None)
Quarter: 2007Q2

REPORT INFORMATION
  Report Type: 
  Country: None (occurrence: None)
  Receive Date: 20070410
  Receipt Date: 20070410
  Transmission Date: 20071010
  Serious: No
  Sender: FDA-Public Use
  Company Number: None

PATIENT

DRUGS (2)
  1. BICITRA [Suspect]
     Dosage: SOLUTION/DROPS
  2. CYTRA-3 [Suspect]
     Dosage: SYRUP

REACTIONS (4)
  - DRUG DISPENSING ERROR [None]
  - HYPERCALCAEMIA [None]
  - HYPERKALAEMIA [None]
  - MEDICATION ERROR [None]
